FAERS Safety Report 22182357 (Version 1)
Quarter: 2023Q2

REPORT INFORMATION
  Report Type: Spontaneous
  Country: US (occurrence: None)
  Receive Date: 20230406
  Receipt Date: 20230406
  Transmission Date: 20230721
  Serious: Yes (Life-Threatening, Hospitalization)
  Sender: FDA-Public Use
  Company Number: None

PATIENT
  Age: 30 Year
  Sex: Female
  Weight: 82 kg

DRUGS (18)
  1. LAMOTRIGINE [Suspect]
     Active Substance: LAMOTRIGINE
     Indication: Anxiety
     Dosage: FREQUENCY : DAILY;?
     Route: 048
     Dates: start: 20230210, end: 20230313
  2. LAMOTRIGINE [Suspect]
     Active Substance: LAMOTRIGINE
     Indication: Depression
  3. Bupropion 300 mg XL [Concomitant]
     Dates: start: 20220511
  4. BUSPIRONE HYDROCHLORIDE [Concomitant]
     Active Substance: BUSPIRONE HYDROCHLORIDE
     Dates: start: 20220516
  5. Mirtazepine 15 mg [Concomitant]
     Dates: start: 20221228
  6. Prednisolone ophthalmic 1% [Concomitant]
     Dates: start: 2023
  7. ZOLPIDEM TARTRATE [Concomitant]
     Active Substance: ZOLPIDEM TARTRATE
     Dates: start: 2023
  8. NUVARING [Concomitant]
     Active Substance: ETHINYL ESTRADIOL\ETONOGESTREL
     Dates: start: 2023
  9. HYDROXYZINE HYDROCHLORIDE [Concomitant]
     Active Substance: HYDROXYZINE HYDROCHLORIDE
     Dates: start: 2023
  10. TRAZODONE [Concomitant]
     Active Substance: TRAZODONE HYDROCHLORIDE
     Dates: start: 2023
  11. LORAZEPAM [Concomitant]
     Active Substance: LORAZEPAM
     Dates: start: 2023
  12. Erythromycin ophthalmic 0.5% [Concomitant]
     Dates: start: 2023
  13. ONDANSETRON [Concomitant]
     Active Substance: ONDANSETRON
     Dates: start: 2023
  14. LEVOFLOXACIN [Concomitant]
     Active Substance: LEVOFLOXACIN
     Dates: start: 20230310
  15. Venlafaxine 37.5 mg ER [Concomitant]
     Dates: start: 20230308
  16. Augmentin 875/125 mg [Concomitant]
     Dates: start: 20230215
  17. CLINDAMYCIN [Concomitant]
     Active Substance: CLINDAMYCIN
     Dates: start: 20220516
  18. IBUPROFEN [Concomitant]
     Active Substance: IBUPROFEN
     Dates: start: 20220516

REACTIONS (4)
  - Stevens-Johnson syndrome [None]
  - Conjunctivitis [None]
  - Sinusitis [None]
  - Drug interaction [None]

NARRATIVE: CASE EVENT DATE: 20230313
